FAERS Safety Report 23535125 (Version 1)
Quarter: 2024Q1

REPORT INFORMATION
  Report Type: Spontaneous
  Country: FR (occurrence: FR)
  Receive Date: 20240217
  Receipt Date: 20240217
  Transmission Date: 20240410
  Serious: Yes (Hospitalization)
  Sender: FDA-Public Use
  Company Number: None

PATIENT
  Age: 17 Year
  Sex: Male

DRUGS (4)
  1. AMOXICILLIN [Suspect]
     Active Substance: AMOXICILLIN
     Indication: Wisdom teeth removal
     Dosage: 600.000MG TID
     Route: 048
     Dates: start: 20231025, end: 20231111
  2. DOXYCYCLINE [Suspect]
     Active Substance: DOXYCYCLINE
     Indication: Acne
     Route: 048
     Dates: start: 20231104, end: 20231111
  3. ACETAMINOPHEN\BELLADONNA LEAF\CAFFEINE\OPIUM [Suspect]
     Active Substance: ACETAMINOPHEN\BELLADONNA LEAF\CAFFEINE\OPIUM
     Indication: Wisdom teeth removal
     Route: 048
     Dates: start: 20231025, end: 20231111
  4. PREDNISOLONE [Suspect]
     Active Substance: PREDNISOLONE
     Indication: Wisdom teeth removal
     Dosage: 20.000MG QD
     Route: 048
     Dates: start: 20231025, end: 20231111

REACTIONS (1)
  - Rhabdomyolysis [Recovering/Resolving]

NARRATIVE: CASE EVENT DATE: 20231110
